FAERS Safety Report 19467480 (Version 1)
Quarter: 2021Q2

REPORT INFORMATION
  Report Type: Spontaneous
  Country: FR (occurrence: FR)
  Receive Date: 20210628
  Receipt Date: 20210628
  Transmission Date: 20210717
  Serious: Yes (Hospitalization)
  Sender: FDA-Public Use
  Company Number: NVSC2021FR139824

PATIENT
  Age: 59 Year
  Sex: Female
  Weight: 37.5 kg

DRUGS (2)
  1. LAMOTRIGINE. [Suspect]
     Active Substance: LAMOTRIGINE
     Indication: INTENTIONAL OVERDOSE
     Dosage: 30 DF
     Route: 048
     Dates: start: 20210428, end: 20210428
  2. CARBAMAZEPINE. [Suspect]
     Active Substance: CARBAMAZEPINE
     Indication: INTENTIONAL OVERDOSE
     Dosage: 60 DF
     Route: 048
     Dates: start: 20210428, end: 20210428

REACTIONS (3)
  - Clonus [Recovered/Resolved]
  - Poisoning deliberate [Recovered/Resolved]
  - Coma [Recovered/Resolved]

NARRATIVE: CASE EVENT DATE: 20210428
